FAERS Safety Report 11628074 (Version 1)
Quarter: 2015Q4

REPORT INFORMATION
  Report Type: Spontaneous
  Country: US (occurrence: None)
  Receive Date: 20151009
  Receipt Date: 20151009
  Transmission Date: 20160304
  Serious: No
  Sender: FDA-Public Use
  Company Number: 15AE049

PATIENT
  Sex: Female

DRUGS (4)
  1. ZETIA [Concomitant]
     Active Substance: EZETIMIBE
  2. EQUATE SLEEP AID [Suspect]
     Active Substance: DOXYLAMINE SUCCINATE
     Indication: INSOMNIA
     Dosage: 1/2-1 TABLET AT NIGHT
  3. TRAMADOL. [Concomitant]
     Active Substance: TRAMADOL
  4. PLAVIX [Concomitant]
     Active Substance: CLOPIDOGREL BISULFATE

REACTIONS (2)
  - Nocturia [None]
  - Middle insomnia [None]

NARRATIVE: CASE EVENT DATE: 20150922
